FAERS Safety Report 6248545-6 (Version None)
Quarter: 2009Q2

REPORT INFORMATION
  Report Type: 
  Country: None (occurrence: None)
  Receive Date: 20090624
  Receipt Date: 20090624
  Transmission Date: 20091009
  Serious: No
  Sender: FDA-Public Use
  Company Number: None

PATIENT
  Age: 89 Year
  Sex: Male

DRUGS (16)
  1. RISPERIDONE [Suspect]
     Indication: DEMENTIA
     Dosage: 12.5MG PO QD
     Route: 048
     Dates: start: 20090401, end: 20090407
  2. RISPERIDONE [Suspect]
     Indication: DEPRESSION
     Dosage: 12.5MG PO QD
     Route: 048
     Dates: start: 20090401, end: 20090407
  3. HEP [Concomitant]
  4. COREG [Concomitant]
  5. HYDROCHLOROTHIAZIDE [Concomitant]
  6. INSULIN [Concomitant]
  7. LEVETIRACETAM [Concomitant]
  8. MEMANTINE [Concomitant]
  9. METOPROLOL [Concomitant]
  10. UROXATRAL [Concomitant]
  11. RAMIPRIL [Concomitant]
  12. RANITIDINE [Concomitant]
  13. REPAGLINIDE [Concomitant]
  14. SENNA [Concomitant]
  15. SERTRALINE [Concomitant]
  16. SIMVASTATIN [Concomitant]

REACTIONS (3)
  - CONVULSION [None]
  - LETHARGY [None]
  - NORMAL PRESSURE HYDROCEPHALUS [None]
